FAERS Safety Report 7604761-X (Version None)
Quarter: 2011Q3

REPORT INFORMATION
  Report Type: 
  Country: None (occurrence: None)
  Receive Date: 20110712
  Receipt Date: 20110705
  Transmission Date: 20111222
  Serious: Yes (Disabling, Other)
  Sender: FDA-Public Use
  Company Number: PHHY2011US05293

PATIENT
  Sex: Male
  Weight: 102.49 kg

DRUGS (6)
  1. NUVIGIL [Concomitant]
     Dosage: UNK
  2. GILENYA [Suspect]
     Indication: MULTIPLE SCLEROSIS
     Dosage: 0.5 MG, DAILY
     Route: 048
     Dates: start: 20101202
  3. GABAPENTIN [Concomitant]
     Dosage: UNK
  4. CLONAZEPAM [Concomitant]
     Dosage: UNK
  5. WARFARIN SODIUM [Concomitant]
     Dosage: UNK
  6. CYMBALTA [Concomitant]
     Dosage: UNK

REACTIONS (6)
  - LIMB DISCOMFORT [None]
  - FALL [None]
  - OPTIC NEURITIS [None]
  - VISUAL IMPAIRMENT [None]
  - TREMOR [None]
  - VISION BLURRED [None]
